FAERS Safety Report 9687509 (Version 1)
Quarter: 2013Q4

REPORT INFORMATION
  Report Type: Spontaneous
  Country: US (occurrence: US)
  Receive Date: 20131114
  Receipt Date: 20131114
  Transmission Date: 20140711
  Serious: No
  Sender: FDA-Public Use
  Company Number: US-JNJFOC-20131101611

PATIENT
  Age: 37 Year
  Sex: Female

DRUGS (9)
  1. SANDOZ FENTANYL TRANSDERMAL SYSTEM [Suspect]
     Indication: PAIN
     Route: 062
  2. SANDOZ FENTANYL TRANSDERMAL SYSTEM [Suspect]
     Indication: PAIN
     Dosage: AS NEEDED
     Route: 062
  3. OXYCONTIN [Concomitant]
     Indication: PAIN
     Route: 048
  4. HYDROCODONE [Concomitant]
     Indication: PAIN
     Dosage: ONE 10/325 MG TABLET
     Route: 048
  5. TIZANIDINE [Concomitant]
     Indication: MUSCLE SPASMS
     Route: 048
  6. GABAPENTIN [Concomitant]
     Route: 048
  7. MELOXICAM [Concomitant]
     Route: 048
  8. MAXZIDE [Concomitant]
     Indication: HYPERTENSION
     Dosage: ONE 37.5-25 MG ONCE A DAY
     Route: 048
  9. ZOLOFT [Concomitant]
     Route: 048

REACTIONS (7)
  - Inappropriate schedule of drug administration [Not Recovered/Not Resolved]
  - Product quality issue [Unknown]
  - Hypoaesthesia [Recovered/Resolved]
  - Hypoaesthesia oral [Recovered/Resolved]
  - Wrong technique in drug usage process [Unknown]
  - Device leakage [Unknown]
  - Wrong technique in drug usage process [Unknown]
